FAERS Safety Report 14097347 (Version 1)
Quarter: 2017Q4

REPORT INFORMATION
  Report Type: Spontaneous
  Country: US (occurrence: US)
  Receive Date: 20171016
  Receipt Date: 20171016
  Transmission Date: 20180321
  Serious: No
  Sender: FDA-Public Use
  Company Number: None

PATIENT
  Age: 65 Year
  Sex: Female
  Weight: 59.85 kg

DRUGS (1)
  1. FLUCONIZOLE [Suspect]
     Active Substance: FLUCONAZOLE
     Indication: CANDIDA INFECTION
     Dosage: ?          QUANTITY:1 CAPSULE(S);OTHER FREQUENCY:ONCE A WEEK;?
     Route: 048
     Dates: start: 20170901, end: 20170928

REACTIONS (4)
  - Vertigo [None]
  - Alopecia [None]
  - Rash [None]
  - Bone pain [None]

NARRATIVE: CASE EVENT DATE: 20170801
